FAERS Safety Report 12571505 (Version 3)
Quarter: 2019Q2

REPORT INFORMATION
  Report Type: Report from Study
  Country: CA (occurrence: CA)
  Receive Date: 20160719
  Receipt Date: 20190523
  Transmission Date: 20190711
  Serious: Yes (Hospitalization)
  Sender: FDA-Public Use
  Company Number: CA-TAKEDA-2016TUS011816

PATIENT
  Age: 50 Year
  Sex: Female

DRUGS (5)
  1. HYDROMORPHONE [Suspect]
     Active Substance: HYDROMORPHONE
     Indication: HEADACHE
     Dosage: 2 MG, UNK
     Route: 065
  2. SALOFALK                           /00000301/ [Concomitant]
     Active Substance: AMINOSALICYLIC ACID
     Dosage: UNK
     Route: 054
  3. FISH OIL [Concomitant]
     Active Substance: FISH OIL
     Dosage: UNK
  4. VEDOLIZUMAB [Suspect]
     Active Substance: VEDOLIZUMAB
     Indication: COLITIS ULCERATIVE
     Dosage: 300 MILLIGRAM
     Route: 042
     Dates: start: 20160623
  5. SALOFALK                           /00000301/ [Concomitant]
     Active Substance: AMINOSALICYLIC ACID
     Dosage: UNK
     Route: 048

REACTIONS (13)
  - Nausea [Recovered/Resolved]
  - Headache [Recovered/Resolved]
  - Colitis ulcerative [Unknown]
  - Decreased appetite [Unknown]
  - C-reactive protein increased [Recovered/Resolved]
  - White blood cell count increased [Unknown]
  - Haematochezia [Unknown]
  - Vomiting [Unknown]
  - Fatigue [Unknown]
  - Headache [Unknown]
  - Haemoglobin decreased [Unknown]
  - Dehydration [Unknown]
  - Somnolence [Recovered/Resolved]

NARRATIVE: CASE EVENT DATE: 20160705
